FAERS Safety Report 5072076-2 (Version None)
Quarter: 2006Q3

REPORT INFORMATION
  Report Type: 
  Country: None (occurrence: None)
  Receive Date: 20060807
  Receipt Date: 20060726
  Transmission Date: 20061208
  Serious: Yes (Death, Hospitalization, Other)
  Sender: FDA-Public Use
  Company Number: NSADSS2003014022

PATIENT
  Sex: Male
  Weight: 81.65 kg

DRUGS (27)
  1. REMICADE [Suspect]
     Route: 041
  2. REMICADE [Suspect]
     Route: 041
  3. REMICADE [Suspect]
     Indication: RHEUMATOID ARTHRITIS
     Route: 041
  4. PREDNISONE TAB [Concomitant]
     Route: 048
  5. TENORMIN [Concomitant]
     Route: 048
  6. COVERA-HS [Concomitant]
     Route: 048
  7. COUMADIN [Concomitant]
     Route: 048
  8. ASPIRIN [Concomitant]
     Route: 048
  9. LIPITOR [Concomitant]
     Route: 048
  10. SYNTHROID [Concomitant]
  11. FISH OIL [Concomitant]
  12. FLOMAX [Concomitant]
     Route: 048
  13. METHOTREXATE [Concomitant]
  14. NEXIUM [Concomitant]
     Route: 048
  15. XANAX [Concomitant]
     Route: 048
  16. TYLENOL W/ CODEINE NO. 3 [Concomitant]
     Dosage: 300-30 MG PRN
  17. CARDIO-TABS [Concomitant]
  18. COZAAR [Concomitant]
  19. IMDUR [Concomitant]
  20. REMERON [Concomitant]
     Indication: ARTHRITIS
     Route: 050
  21. VIOXX [Concomitant]
  22. ALPRAZOLAM [Concomitant]
  23. ECOTRIN [Concomitant]
  24. ARICEPT [Concomitant]
  25. NITROSTAT [Concomitant]
  26. QUININE SULFATE [Concomitant]
  27. GLUCOSAMINE [Concomitant]
     Route: 048

REACTIONS (7)
  - CARDIAC FAILURE [None]
  - CEREBROVASCULAR ACCIDENT [None]
  - CORONARY ARTERY DISEASE [None]
  - MENINGITIS CRYPTOCOCCAL [None]
  - MYOCARDIAL INFARCTION [None]
  - PNEUMONIA ASPIRATION [None]
  - RESPIRATORY FAILURE [None]
